FAERS Safety Report 5905517-6 (Version None)
Quarter: 2008Q4

REPORT INFORMATION
  Report Type: 
  Country: None (occurrence: None)
  Receive Date: 20081001
  Receipt Date: 20081001
  Transmission Date: 20090506
  Serious: Yes (Hospitalization)
  Sender: FDA-Public Use
  Company Number: None

PATIENT
  Sex: Male
  Weight: 70 kg

DRUGS (6)
  1. IRINETECAN [Suspect]
     Indication: GLIOBLASTOMA MULTIFORME
     Dosage: DAY 1, 8, 22, 29 IV
     Route: 042
     Dates: start: 20061228
  2. IRINETECAN [Suspect]
     Indication: GLIOBLASTOMA MULTIFORME
     Dosage: DAY 1, 8, 22, 29 IV
     Route: 042
     Dates: start: 20070104
  3. TEMODAR [Suspect]
     Indication: GLIOBLASTOMA MULTIFORME
     Dosage: 200MG/M2 DAYS 1-5 PO
     Route: 048
     Dates: start: 20061228, end: 20070101
  4. PRILOSEC [Concomitant]
  5. KEPPRA [Concomitant]
  6. DECADRON [Concomitant]

REACTIONS (12)
  - ASTHENIA [None]
  - BLOOD DISORDER [None]
  - DIARRHOEA [None]
  - GASTROINTESTINAL INFECTION [None]
  - HYPERGLYCAEMIA [None]
  - INFECTION [None]
  - LEUKOPENIA [None]
  - MUSCULOSKELETAL DISORDER [None]
  - NEUTROPENIA [None]
  - PULMONARY EMBOLISM [None]
  - SUBCLAVIAN VEIN THROMBOSIS [None]
  - THROMBOCYTOPENIA [None]
